FAERS Safety Report 6175230-1 (Version None)
Quarter: 2009Q2

REPORT INFORMATION
  Report Type: 
  Country: None (occurrence: None)
  Receive Date: 20090430
  Receipt Date: 20090128
  Transmission Date: 20091009
  Serious: No
  Sender: FDA-Public Use
  Company Number: US-ASTRAZENECA-2009UW02546

PATIENT
  Age: 49 Year
  Sex: Male

DRUGS (2)
  1. NEXIUM [Suspect]
     Dosage: UNKNOWN
     Route: 048
  2. PULMICORT FLEXHALER [Suspect]
     Dosage: UNKNOWN
     Route: 055

REACTIONS (1)
  - NECK PAIN [None]
